FAERS Safety Report 24638387 (Version 1)
Quarter: 2024Q4

REPORT INFORMATION
  Report Type: Spontaneous
  Country: US (occurrence: US)
  Receive Date: 20241119
  Receipt Date: 20241119
  Transmission Date: 20250115
  Serious: Yes (Other)
  Sender: PFIZER
  Company Number: US-PFIZER INC-202400303021

PATIENT
  Age: 47 Year
  Sex: Male

DRUGS (6)
  1. METHOTREXATE SODIUM [Suspect]
     Active Substance: METHOTREXATE SODIUM
     Indication: Subretinal fluid
     Dosage: 7.5 MG, WEEKLY
     Route: 048
     Dates: start: 2020
  2. METHOTREXATE SODIUM [Suspect]
     Active Substance: METHOTREXATE SODIUM
     Indication: Papilloedema
  3. METHOTREXATE SODIUM [Suspect]
     Active Substance: METHOTREXATE SODIUM
     Indication: Choroidal neovascularisation
  4. PREDNISONE [Suspect]
     Active Substance: PREDNISONE
     Dosage: 7.5 MG, DAILY
     Dates: start: 2020
  5. PREDNISONE [Suspect]
     Active Substance: PREDNISONE
     Dosage: 5 MG, DAILY
     Dates: start: 2020
  6. ADALIMUMAB [Concomitant]
     Active Substance: ADALIMUMAB
     Dosage: 40 MG, EVERY 2 WEEKS
     Dates: start: 2020

REACTIONS (6)
  - Liver injury [Unknown]
  - Hepatotoxicity [Unknown]
  - Pulmonary sarcoidosis [Unknown]
  - Sarcoidosis [Unknown]
  - Off label use [Unknown]
  - Obstructive airways disorder [Unknown]
